FAERS Safety Report 9525430 (Version 5)
Quarter: 2014Q2

REPORT INFORMATION
  Report Type: Spontaneous
  Country: JP (occurrence: JP)
  Receive Date: 20130916
  Receipt Date: 20140521
  Transmission Date: 20141212
  Serious: Yes (Death)
  Sender: FDA-Public Use
  Company Number: JP-ROCHE-1268690

PATIENT
  Age: 67 Year
  Sex: Female
  Weight: 40 kg

DRUGS (2)
  1. ACTEMRA [Suspect]
     Indication: RHEUMATOID ARTHRITIS
     Route: 041
     Dates: start: 20121016, end: 20130726
  2. PREDONINE [Concomitant]
     Indication: RHEUMATOID ARTHRITIS
     Route: 048

REACTIONS (4)
  - Hepatic cancer metastatic [Fatal]
  - Colon cancer [Fatal]
  - Pulmonary oedema [Fatal]
  - Cardiac failure acute [Fatal]
